FAERS Safety Report 6643061-1 (Version None)
Quarter: 2010Q1

REPORT INFORMATION
  Report Type: 
  Country: None (occurrence: None)
  Receive Date: 20100316
  Receipt Date: 20100304
  Transmission Date: 20100710
  Serious: Yes (Other)
  Sender: FDA-Public Use
  Company Number: 230040J10IRL

PATIENT
  Age: 33 Year
  Sex: Female

DRUGS (1)
  1. REBIF [Suspect]
     Dosage: 44 MCG
     Dates: start: 20100201

REACTIONS (4)
  - INFLUENZA [None]
  - MUSCLE SPASMS [None]
  - PARALYSIS [None]
  - WRONG TECHNIQUE IN DRUG USAGE PROCESS [None]
